FAERS Safety Report 22196830 (Version 1)
Quarter: 2023Q2

REPORT INFORMATION
  Report Type: Spontaneous
  Country: US (occurrence: None)
  Receive Date: 20230411
  Receipt Date: 20230411
  Transmission Date: 20230721
  Serious: Yes (Death, Other)
  Sender: FDA-Public Use
  Company Number: US-MICRO LABS LIMITED-ML2023-01936

PATIENT
  Age: 71 Year
  Sex: Female

DRUGS (5)
  1. VERAPAMIL HYDROCHLORIDE [Suspect]
     Active Substance: VERAPAMIL HYDROCHLORIDE
     Indication: Hypertrophic cardiomyopathy
  2. VERAPAMIL HYDROCHLORIDE [Suspect]
     Active Substance: VERAPAMIL HYDROCHLORIDE
     Indication: Implantable defibrillator insertion
  3. PAXLOVID [Suspect]
     Active Substance: NIRMATRELVIR\RITONAVIR
     Indication: COVID-19
  4. NADOLOL [Concomitant]
     Active Substance: NADOLOL
     Indication: Hypertrophic cardiomyopathy
  5. NADOLOL [Concomitant]
     Active Substance: NADOLOL
     Indication: Implantable defibrillator insertion

REACTIONS (2)
  - Cardiogenic shock [Fatal]
  - Drug interaction [Unknown]
